FAERS Safety Report 16399917 (Version 1)
Quarter: 2019Q2

REPORT INFORMATION
  Report Type: Spontaneous
  Country: US (occurrence: US)
  Receive Date: 20190606
  Receipt Date: 20190606
  Transmission Date: 20190711
  Serious: Yes (Hospitalization, Other)
  Sender: FDA-Public Use
  Company Number: US-ASTRAZENECA-2019SE81272

PATIENT

DRUGS (3)
  1. IBRANCE [Suspect]
     Active Substance: PALBOCICLIB
     Indication: BREAST CANCER METASTATIC
     Dosage: 125 MG TAKE ONE CAPSULE DAIY FOR 21 DAYS OFF 7 DAYS THEN RESTART
     Route: 048
     Dates: start: 20171202
  2. FASLODEX [Suspect]
     Active Substance: FULVESTRANT
     Dosage: 250 MG/5 ML
     Route: 030
     Dates: start: 20171102
  3. XGEVA [Concomitant]
     Active Substance: DENOSUMAB
     Dosage: 120 MG/1.7 ML
     Route: 058
     Dates: start: 201712

REACTIONS (1)
  - Spinal synovial cyst [Unknown]
